FAERS Safety Report 4612605-3 (Version None)
Quarter: 2005Q1

REPORT INFORMATION
  Report Type: 
  Country: None (occurrence: None)
  Receive Date: 20050316
  Receipt Date: 20050228
  Transmission Date: 20050727
  Serious: Yes (Other)
  Sender: FDA-Public Use
  Company Number: 2005BI001933

PATIENT
  Age: 67 Year
  Sex: Female

DRUGS (10)
  1. AVONEX [Suspect]
     Indication: MULTIPLE SCLEROSIS
     Dosage: 30 UG; QW; IM
     Route: 030
     Dates: start: 20010816, end: 20030815
  2. AVONEX [Suspect]
     Indication: MULTIPLE SCLEROSIS
     Dosage: 30 UG; QW; IM
     Route: 030
     Dates: start: 20030821, end: 20041231
  3. ASACOL [Concomitant]
  4. LEVOTHROID [Concomitant]
  5. ZOLOFT [Concomitant]
  6. FOSAMAX [Concomitant]
  7. ASPIRIN [Concomitant]
  8. FOLIC ACID [Concomitant]
  9. VITAMIIN C [Concomitant]
  10. CALCIUM GLUCONATE [Concomitant]

REACTIONS (1)
  - LEUKAEMIA [None]
